FAERS Safety Report 10648837 (Version 1)
Quarter: 2014Q4

REPORT INFORMATION
  Report Type: Spontaneous
  Country: GR (occurrence: GR)
  Receive Date: 20141212
  Receipt Date: 20141212
  Transmission Date: 20150529
  Serious: Yes (Life-Threatening)
  Sender: FDA-Public Use
  Company Number: GR-SA-2014SA168847

PATIENT
  Age: 68 Year
  Sex: Female

DRUGS (5)
  1. DEXAMETHASONE. [Concomitant]
     Active Substance: DEXAMETHASONE
  2. FENISTIL [Concomitant]
     Active Substance: DIMETHINDENE
  3. ALOXI [Concomitant]
     Active Substance: PALONOSETRON HYDROCHLORIDE
  4. OXALIPLATIN. [Suspect]
     Active Substance: OXALIPLATIN
     Indication: COLON CANCER METASTATIC
     Route: 042
     Dates: start: 20120830, end: 20120830
  5. ZANTAC [Concomitant]
     Active Substance: RANITIDINE HYDROCHLORIDE

REACTIONS (3)
  - Feeling cold [Recovered/Resolved]
  - Muscle rigidity [Recovered/Resolved]
  - Chills [Recovered/Resolved]

NARRATIVE: CASE EVENT DATE: 20120830
